FAERS Safety Report 24096375 (Version 1)
Quarter: 2024Q3

REPORT INFORMATION
  Report Type: Spontaneous
  Country: US (occurrence: US)
  Receive Date: 20240716
  Receipt Date: 20240716
  Transmission Date: 20241016
  Serious: Yes (Other)
  Sender: RANBAXY
  Company Number: US-SUN PHARMACEUTICAL INDUSTRIES LTD-2024R1-455131

PATIENT

DRUGS (1)
  1. BUPRENORPHINE [Suspect]
     Active Substance: BUPRENORPHINE
     Indication: Product used for unknown indication
     Dosage: 8 MILLIGRAM
     Route: 060

REACTIONS (16)
  - Narcolepsy [Unknown]
  - Suicidal ideation [Unknown]
  - Drug ineffective [Unknown]
  - Crying [Unknown]
  - Depression [Unknown]
  - Asthenia [Unknown]
  - Fatigue [Unknown]
  - Feelings of worthlessness [Unknown]
  - Grief reaction [Unknown]
  - Intentional product use issue [Unknown]
  - Product quality issue [Unknown]
  - Product substitution issue [Unknown]
  - Glossodynia [Unknown]
  - Hyperhidrosis [Unknown]
  - Therapeutic response shortened [Unknown]
  - Withdrawal syndrome [Unknown]
